FAERS Safety Report 18066524 (Version 2)
Quarter: 2020Q3

REPORT INFORMATION
  Report Type: Spontaneous
  Country: JP (occurrence: JP)
  Receive Date: 20200724
  Receipt Date: 20200901
  Transmission Date: 20201103
  Serious: Yes (Hospitalization, Other)
  Sender: FDA-Public Use
  Company Number: JP-009507513-2007JPN008392

PATIENT
  Sex: Male
  Weight: 52 kg

DRUGS (3)
  1. LINEZOLID. [Concomitant]
     Active Substance: LINEZOLID
     Indication: PNEUMONIA STAPHYLOCOCCAL
     Dosage: 600 MILLIGRAM, BID
     Route: 041
     Dates: start: 20200702, end: 20200705
  2. SIVEXTRO [Suspect]
     Active Substance: TEDIZOLID PHOSPHATE
     Indication: PNEUMONIA STAPHYLOCOCCAL
     Dosage: 200 MILLIGRAM, QD
     Route: 041
     Dates: start: 20200706, end: 20200706
  3. MEROPENEM. [Suspect]
     Active Substance: MEROPENEM
     Indication: URINARY TRACT INFECTION
     Dosage: 0.5 GRAM, QD
     Route: 041
     Dates: start: 20200626, end: 20200707

REACTIONS (1)
  - Stevens-Johnson syndrome [Not Recovered/Not Resolved]

NARRATIVE: CASE EVENT DATE: 20200707
